FAERS Safety Report 5600250-2 (Version None)
Quarter: 2008Q1

REPORT INFORMATION
  Report Type: 
  Country: None (occurrence: None)
  Receive Date: 20080123
  Receipt Date: 20080114
  Transmission Date: 20080703
  Serious: Yes (Life-Threatening)
  Sender: FDA-Public Use
  Company Number: FR-AVENTIS-200810173FR

PATIENT
  Age: 66 Year
  Sex: Male

DRUGS (10)
  1. FLAGYL [Suspect]
     Route: 048
     Dates: start: 20071201
  2. VFEND [Suspect]
     Route: 048
     Dates: start: 20071202, end: 20071205
  3. INIPOMP                            /01263201/ [Concomitant]
     Route: 048
  4. GENTAMICIN [Concomitant]
     Route: 048
  5. TAVANIC [Concomitant]
     Route: 048
  6. NORADRENALINE [Concomitant]
  7. HYDROCORTISONE HEMISUCCINATE [Concomitant]
  8. HYPNOVEL                           /00634103/ [Concomitant]
  9. MORPHINE [Concomitant]
  10. ASPEGIC 1000 [Concomitant]

REACTIONS (1)
  - ATRIOVENTRICULAR BLOCK SECOND DEGREE [None]
